FAERS Safety Report 8196359-2 (Version None)
Quarter: 2012Q1

REPORT INFORMATION
  Report Type: 
  Country: None (occurrence: None)
  Receive Date: 20120309
  Receipt Date: 20120302
  Transmission Date: 20120608
  Serious: No
  Sender: FDA-Public Use
  Company Number: US-PFIZER INC-2012037297

PATIENT
  Sex: Male
  Weight: 96.145 kg

DRUGS (2)
  1. XALATAN [Suspect]
     Indication: GLAUCOMA
     Dosage: DAILY
     Route: 047
  2. PRILOSEC [Concomitant]
     Indication: DYSPEPSIA
     Dosage: UNK

REACTIONS (2)
  - EYE PRURITUS [None]
  - DRY EYE [None]
